FAERS Safety Report 6567617-X (Version None)
Quarter: 2010Q1

REPORT INFORMATION
  Report Type: 
  Country: None (occurrence: None)
  Receive Date: 20100202
  Receipt Date: 20100127
  Transmission Date: 20100710
  Serious: Yes (Hospitalization)
  Sender: FDA-Public Use
  Company Number: NO-MERCK-1001NOR00003

PATIENT
  Age: 63 Year
  Sex: Female

DRUGS (3)
  1. ALENDRONIC ACID [Suspect]
     Route: 048
  2. ASCORBIC ACID AND CALCIUM PHOSPHATE, DIBASIC AND CHOLECALCIFEROL [Concomitant]
     Route: 048
  3. LEVOTHYROXINE SODIUM [Concomitant]
     Route: 048

REACTIONS (1)
  - FEMUR FRACTURE [None]
